FAERS Safety Report 17088925 (Version 2)
Quarter: 2020Q1

REPORT INFORMATION
  Report Type: Spontaneous
  Country: US (occurrence: US)
  Receive Date: 20191128
  Receipt Date: 20200206
  Transmission Date: 20200409
  Serious: No
  Sender: FDA-Public Use
  Company Number: US-HTU-2019US019702

PATIENT
  Sex: Male

DRUGS (2)
  1. VALCHLOR [Suspect]
     Active Substance: MECHLORETHAMINE
     Indication: CUTANEOUS T-CELL LYMPHOMA
     Dosage: UNK, MONDAY, WEDNESDAY AND FRIDAY
     Route: 061
  2. VALCHLOR [Suspect]
     Active Substance: MECHLORETHAMINE
     Dosage: UNK, 5-7/WEEK
     Route: 061

REACTIONS (11)
  - Application site exfoliation [Unknown]
  - Skin abrasion [Not Recovered/Not Resolved]
  - Application site hypersensitivity [Unknown]
  - Off label use [Unknown]
  - Skin wound [Recovering/Resolving]
  - Feeling hot [Not Recovered/Not Resolved]
  - Pruritus [Not Recovered/Not Resolved]
  - Intentional dose omission [Unknown]
  - Chills [Not Recovered/Not Resolved]
  - Application site erythema [Unknown]
  - Skin haemorrhage [Not Recovered/Not Resolved]
